FAERS Safety Report 11871438 (Version 1)
Quarter: 2015Q4

REPORT INFORMATION
  Report Type: Spontaneous
  Country: US (occurrence: US)
  Receive Date: 20151228
  Receipt Date: 20151228
  Transmission Date: 20160305
  Serious: Yes (Other)
  Sender: FDA-Public Use
  Company Number: US-JUBILANT CADISTA PHARMACEUTICALS-2015JUB00431

PATIENT
  Age: 69 Year
  Sex: Female

DRUGS (4)
  1. DIPHENHYDRAMINE. [Concomitant]
     Active Substance: DIPHENHYDRAMINE
     Indication: CONTRAST MEDIA REACTION
     Dosage: ADMINISTERED 1 HOUR PRIOR TO CONTRAST EXPOSURES
     Route: 065
  2. PREDNISONE. [Suspect]
     Active Substance: PREDNISONE
     Dosage: UNK
  3. PREDNISONE. [Suspect]
     Active Substance: PREDNISONE
     Indication: CONTRAST MEDIA REACTION
     Dosage: 13, 7, AND 1 HOUR(S) PRIOR TO CONTRAST EXPOSURE
     Route: 065
  4. FAMOTIDINE. [Concomitant]
     Active Substance: FAMOTIDINE
     Indication: CONTRAST MEDIA REACTION
     Dosage: ADMINISTERED 1 HOUR PRIOR TO CONTRAST EXPOSURES
     Route: 065

REACTIONS (2)
  - Contrast media reaction [Recovered/Resolved]
  - Anaphylactic reaction [Recovered/Resolved]
